FAERS Safety Report 8969549 (Version 1)
Quarter: 2012Q4

REPORT INFORMATION
  Report Type: 
  Country: US (occurrence: US)
  Receive Date: 20121217
  Receipt Date: 20121217
  Transmission Date: 20130627
  Serious: No
  Sender: FDA-Public Use
  Company Number: US-009507513-1212USA003199

PATIENT
  Sex: Female

DRUGS (1)
  1. AZASITE [Suspect]
     Dosage: 2 DF, per day
     Route: 047
     Dates: start: 20121201

REACTIONS (2)
  - Drug dose omission [Unknown]
  - Product quality issue [Unknown]
